FAERS Safety Report 12359413 (Version 1)
Quarter: 2016Q2

REPORT INFORMATION
  Report Type: Spontaneous
  Country: US (occurrence: None)
  Receive Date: 20160511
  Receipt Date: 20160511
  Transmission Date: 20160815
  Serious: Yes (Death, Hospitalization, Other)
  Sender: FDA-Public Use
  Company Number: None

PATIENT
  Age: 75 Year
  Sex: Female
  Weight: 96.9 kg

DRUGS (1)
  1. ENOXAPARIN [Suspect]
     Active Substance: ENOXAPARIN
     Indication: PULMONARY EMBOLISM
     Route: 058
     Dates: start: 20160112, end: 20160124

REACTIONS (7)
  - Urinary tract infection [None]
  - Pulmonary embolism [None]
  - Oedema peripheral [None]
  - Hypotension [None]
  - Retroperitoneal haemorrhage [None]
  - Somnolence [None]
  - Cellulitis [None]

NARRATIVE: CASE EVENT DATE: 20160124
